FAERS Safety Report 9625505 (Version 1)
Quarter: 2013Q4

REPORT INFORMATION
  Report Type: Spontaneous
  Country: CH (occurrence: CH)
  Receive Date: 20131016
  Receipt Date: 20131016
  Transmission Date: 20140711
  Serious: Yes (Hospitalization)
  Sender: FDA-Public Use
  Company Number: PHHY2013CH113989

PATIENT
  Age: 8 Year
  Sex: Female

DRUGS (1)
  1. DOXORUBICIN [Suspect]
     Indication: CHEMOTHERAPY

REACTIONS (8)
  - Pulmonary oedema [Unknown]
  - Oedema peripheral [Unknown]
  - Oliguria [Unknown]
  - Anuria [Unknown]
  - Cardiomyopathy [Unknown]
  - Cardiac failure [Unknown]
  - Tricuspid valve incompetence [Unknown]
  - Mitral valve incompetence [Unknown]
